FAERS Safety Report 10360607 (Version 1)
Quarter: 2014Q3

REPORT INFORMATION
  Report Type: Spontaneous
  Country: US (occurrence: US)
  Receive Date: 20140804
  Receipt Date: 20140804
  Transmission Date: 20150326
  Serious: No
  Sender: FDA-Public Use
  Company Number: US-BAYER-2014-112975

PATIENT
  Age: 45 Year
  Sex: Female

DRUGS (2)
  1. ANGELIQ [Suspect]
     Active Substance: DROSPIRENONE\ESTRADIOL
     Indication: MENOPAUSAL SYMPTOMS
     Dosage: 1 DF, QD
     Route: 048
     Dates: start: 20140715
  2. PREMARIN [ESTROGENS CONJUGATED] [Concomitant]
     Dosage: UNK
     Route: 061
     Dates: start: 2013, end: 201405

REACTIONS (5)
  - Food craving [None]
  - Mood altered [None]
  - Anxiety [None]
  - Feeling abnormal [None]
  - Weight increased [None]
